APPROVED DRUG PRODUCT: OXYTOCIN 20 USP UNITS IN DEXTROSE 5%
Active Ingredient: OXYTOCIN
Strength: 2USP UNITS/100ML **Federal Register determination that product was not discontinued or withdrawn for safety or effectiveness reasons**
Dosage Form/Route: INJECTABLE;INJECTION
Application: N019185 | Product #002
Applicant: ABBOTT LABORATORIES PHARMACEUTICAL PRODUCTS DIV
Approved: Mar 29, 1985 | RLD: Yes | RS: No | Type: DISCN